FAERS Safety Report 9974086 (Version 1)
Quarter: 2014Q1

REPORT INFORMATION
  Report Type: Spontaneous
  Country: US (occurrence: None)
  Receive Date: 20140127
  Receipt Date: 20140127
  Transmission Date: 20141002
  Serious: Yes (Hospitalization)
  Sender: FDA-Public Use
  Company Number: 1265560

PATIENT
  Age: 73 Year
  Sex: Male

DRUGS (1)
  1. RITUXAN [Suspect]
     Indication: RHEUMATOID ARTHRITIS

REACTIONS (4)
  - Herpes zoster [None]
  - Furuncle [None]
  - Rash [None]
  - Hypoacusis [None]
